FAERS Safety Report 5627152-X (Version None)
Quarter: 2008Q1

REPORT INFORMATION
  Report Type: 
  Country: None (occurrence: None)
  Receive Date: 20080212
  Receipt Date: 20080212
  Transmission Date: 20080703
  Serious: No
  Sender: FDA-Public Use
  Company Number: None

PATIENT
  Sex: Female
  Weight: 113.3993 kg

DRUGS (1)
  1. DEPO-MEDROL [Suspect]
     Indication: BACK PAIN
     Dosage: 200ML 1 TIME INTRADISCAL
     Route: 024
     Dates: start: 20071012, end: 20071012

REACTIONS (11)
  - ARTHRALGIA [None]
  - BACK PAIN [None]
  - BLOOD TEST ABNORMAL [None]
  - DEPRESSION [None]
  - FATIGUE [None]
  - HAIR TEXTURE ABNORMAL [None]
  - IRRITABILITY [None]
  - MYALGIA [None]
  - NERVOUSNESS [None]
  - ONYCHOCLASIS [None]
  - WEIGHT INCREASED [None]
